FAERS Safety Report 19900903 (Version 2)
Quarter: 2021Q4

REPORT INFORMATION
  Report Type: Spontaneous
  Country: JP (occurrence: JP)
  Receive Date: 20210929
  Receipt Date: 20211011
  Transmission Date: 20220303
  Serious: Yes (Other)
  Sender: FDA-Public Use
  Company Number: JP-PFIZER INC-202101227969

PATIENT
  Age: 72 Year
  Sex: Female

DRUGS (1)
  1. VYNDAQEL [Suspect]
     Active Substance: TAFAMIDIS MEGLUMINE
     Indication: Cardiac amyloidosis
     Dosage: UNK
     Route: 048

REACTIONS (3)
  - Neuropathy peripheral [Unknown]
  - Brain natriuretic peptide increased [Unknown]
  - Troponin T increased [Unknown]
